FAERS Safety Report 9630051 (Version 3)
Quarter: 2014Q1

REPORT INFORMATION
  Report Type: Spontaneous
  Country: US (occurrence: US)
  Receive Date: 20131017
  Receipt Date: 20140227
  Transmission Date: 20141002
  Serious: Yes (Hospitalization)
  Sender: FDA-Public Use
  Company Number: US-B.I. PHARMACEUTICALS,INC./RIDGEFIELD-2013-BI-32780BP

PATIENT
  Age: 76 Year
  Sex: Male
  Weight: 68.04 kg

DRUGS (6)
  1. PRADAXA [Suspect]
     Indication: ATRIAL FIBRILLATION
     Route: 065
     Dates: start: 20101229, end: 20111013
  2. ASPIRIN [Concomitant]
     Dosage: 81 MG
     Route: 065
  3. LOPRESSOR [Concomitant]
     Route: 065
  4. LEVOTHYROXINE [Concomitant]
     Dosage: 88 MCG
     Route: 065
  5. VITAMIN B12 [Concomitant]
     Route: 065
  6. AMBIEN [Concomitant]
     Indication: SLEEP DISORDER
     Route: 065

REACTIONS (2)
  - Gastrointestinal haemorrhage [Unknown]
  - Anaemia [Unknown]
